FAERS Safety Report 22636355 (Version 1)
Quarter: 2023Q2

REPORT INFORMATION
  Report Type: Report from Study
  Country: US (occurrence: US)
  Receive Date: 20230623
  Receipt Date: 20230623
  Transmission Date: 20230722
  Serious: Yes (Other)
  Sender: FDA-Public Use
  Company Number: US-ABBVIE-5299315

PATIENT
  Sex: Female

DRUGS (1)
  1. RINVOQ [Suspect]
     Active Substance: UPADACITINIB
     Indication: Colitis ulcerative
     Route: 048
     Dates: start: 20220602

REACTIONS (4)
  - Systemic lupus erythematosus [Unknown]
  - Seasonal allergy [Recovered/Resolved]
  - Musculoskeletal stiffness [Unknown]
  - Rash [Unknown]
